FAERS Safety Report 7452352-6 (Version None)
Quarter: 2011Q2

REPORT INFORMATION
  Report Type: 
  Country: None (occurrence: None)
  Receive Date: 20110425
  Receipt Date: 20110412
  Transmission Date: 20111010
  Serious: Yes (Other)
  Sender: FDA-Public Use
  Company Number: 2011001826

PATIENT
  Age: 69 Year
  Sex: Male

DRUGS (3)
  1. CISPLATIN (CISPLASTIN) [Concomitant]
  2. GEMCITABINE [Concomitant]
  3. TARCEVA [Suspect]
     Indication: NON-SMALL CELL LUNG CANCER
     Dosage: (MG), ORAL
     Route: 048

REACTIONS (4)
  - DISEASE PROGRESSION [None]
  - PULMONARY EMBOLISM [None]
  - RASH [None]
  - LUNG SQUAMOUS CELL CARCINOMA STAGE UNSPECIFIED [None]
